FAERS Safety Report 13912142 (Version 1)
Quarter: 2017Q3

REPORT INFORMATION
  Report Type: Spontaneous
  Country: US (occurrence: US)
  Receive Date: 20170828
  Receipt Date: 20170828
  Transmission Date: 20171127
  Serious: No
  Sender: FDA-Public Use
  Company Number: US-ROCHE-1142024

PATIENT
  Age: 71 Year
  Sex: Female

DRUGS (11)
  1. VIOXX [Concomitant]
     Active Substance: ROFECOXIB
     Dosage: ONCE DAILY
     Route: 065
  2. ATENOLOL. [Concomitant]
     Active Substance: ATENOLOL
     Dosage: TWICE A DAY
     Route: 065
  3. ASA [Concomitant]
     Active Substance: ASPIRIN
     Dosage: ONCE DAILY
     Route: 065
  4. HYZAAR [Concomitant]
     Active Substance: HYDROCHLOROTHIAZIDE\LOSARTAN POTASSIUM
     Dosage: 100/25 MG ONCE DAILY
     Route: 065
  5. VITAMIN E [Concomitant]
     Active Substance: .ALPHA.-TOCOPHEROL
     Dosage: ONCE DAILY
     Route: 065
  6. PRILOSEC [Concomitant]
     Active Substance: OMEPRAZOLE MAGNESIUM
     Dosage: ONCE DAILY
     Route: 065
  7. ISMO [Concomitant]
     Active Substance: ISOSORBIDE MONONITRATE
     Dosage: TWICE A DAY
     Route: 065
  8. GLYBURIDE. [Concomitant]
     Active Substance: GLYBURIDE
     Dosage: HALF TABLET TWICE A DAY
     Route: 065
  9. NUTROPIN [Suspect]
     Active Substance: SOMATROPIN
     Indication: GROWTH HORMONE DEFICIENCY
     Dosage: 5 UNITS
     Route: 058
  10. FOSAMAX [Concomitant]
     Active Substance: ALENDRONATE SODIUM
     Dosage: ONCE DAILY
     Route: 065
  11. ZOCOR [Concomitant]
     Active Substance: SIMVASTATIN
     Dosage: ONCE DAILY
     Route: 065

REACTIONS (1)
  - Arthralgia [Unknown]

NARRATIVE: CASE EVENT DATE: 20001108
